FAERS Safety Report 10157973 (Version 2)
Quarter: 2014Q2

REPORT INFORMATION
  Report Type: Spontaneous
  Country: US (occurrence: US)
  Receive Date: 20140507
  Receipt Date: 20140613
  Transmission Date: 20141212
  Serious: Yes (Other)
  Sender: FDA-Public Use
  Company Number: US-GLAXOSMITHKLINE-A1072199A

PATIENT
  Age: 78 Year
  Sex: Male

DRUGS (3)
  1. ADVAIR [Suspect]
     Indication: DYSPNOEA
     Route: 065
  2. LANTUS [Concomitant]
  3. UNKNOWN MEDICATION [Concomitant]

REACTIONS (1)
  - Cardiac operation [Unknown]
